FAERS Safety Report 20196094 (Version 1)
Quarter: 2021Q4

REPORT INFORMATION
  Report Type: Spontaneous
  Country: DE (occurrence: DE)
  Receive Date: 20211216
  Receipt Date: 20211216
  Transmission Date: 20220304
  Serious: Yes (Hospitalization)
  Sender: FDA-Public Use
  Company Number: DE-PFIZER INC-202101731256

PATIENT
  Age: 71 Year
  Sex: Female

DRUGS (1)
  1. CELEBREX [Suspect]
     Active Substance: CELECOXIB
     Indication: Arthritis
     Dosage: 200 MG

REACTIONS (5)
  - Upper limb fracture [Unknown]
  - Flushing [Unknown]
  - Erythema [Unknown]
  - Rash pustular [Unknown]
  - Feeling hot [Unknown]

NARRATIVE: CASE EVENT DATE: 20211101
